FAERS Safety Report 5405441-1 (Version None)
Quarter: 2007Q3

REPORT INFORMATION
  Report Type: 
  Country: None (occurrence: None)
  Receive Date: 20070803
  Receipt Date: 20070723
  Transmission Date: 20080115
  Serious: Yes (Other)
  Sender: FDA-Public Use
  Company Number: US-PFIZER INC-2007062140

PATIENT
  Sex: Male
  Weight: 76.2 kg

DRUGS (2)
  1. SUTENT [Suspect]
     Indication: RENAL CELL CARCINOMA STAGE UNSPECIFIED
     Route: 048
  2. NEXIUM [Concomitant]
     Indication: ULCER
     Route: 048

REACTIONS (9)
  - ANAEMIA [None]
  - ASTHENIA [None]
  - BRADYPHRENIA [None]
  - CONFUSIONAL STATE [None]
  - FATIGUE [None]
  - HYPERSOMNIA [None]
  - MEMORY IMPAIRMENT [None]
  - NAUSEA [None]
  - TUMOUR PAIN [None]
